FAERS Safety Report 10440315 (Version 2)
Quarter: 2014Q4

REPORT INFORMATION
  Report Type: Spontaneous
  Country: GB (occurrence: GB)
  Receive Date: 20140909
  Receipt Date: 20141029
  Transmission Date: 20150528
  Serious: Yes (Death, Other)
  Sender: FDA-Public Use
  Company Number: GB-ROCHE-1458326

PATIENT
  Age: 43 Year
  Sex: Male

DRUGS (11)
  1. DEXAMETHASONE. [Concomitant]
     Active Substance: DEXAMETHASONE
  2. CYTARABINE. [Concomitant]
     Active Substance: CYTARABINE
  3. PREDNISOLONE. [Concomitant]
     Active Substance: PREDNISOLONE
  4. ETOPOSIDE. [Concomitant]
     Active Substance: ETOPOSIDE
  5. RITUXIMAB [Suspect]
     Active Substance: RITUXIMAB
     Indication: B-CELL LYMPHOMA
     Route: 065
  6. DOXORUBICIN [Concomitant]
     Active Substance: DOXORUBICIN
  7. FLUDARABINE [Concomitant]
     Active Substance: FLUDARABINE PHOSPHATE
  8. MITOXANTRONE [Concomitant]
     Active Substance: MITOXANTRONE HYDROCHLORIDE
  9. CYCLOPHOSPHAMIDE. [Concomitant]
     Active Substance: CYCLOPHOSPHAMIDE
  10. VINCRISTIN [Concomitant]
     Active Substance: VINCRISTINE
  11. CISPLATIN. [Concomitant]
     Active Substance: CISPLATIN

REACTIONS (6)
  - Pneumonia [Unknown]
  - Lymphocytosis [Unknown]
  - Sepsis [Fatal]
  - Disease recurrence [Unknown]
  - Splenomegaly [Unknown]
  - Lymphadenopathy [Unknown]
